FAERS Safety Report 5390355-6 (Version None)
Quarter: 2007Q3

REPORT INFORMATION
  Report Type: 
  Country: None (occurrence: None)
  Receive Date: 20070718
  Receipt Date: 20070712
  Transmission Date: 20080115
  Serious: Yes (Hospitalization)
  Sender: FDA-Public Use
  Company Number: US-JNJFOC-20070703131

PATIENT
  Sex: Male
  Weight: 86.18 kg

DRUGS (3)
  1. RISPERDAL [Suspect]
     Indication: PARANOIA
     Route: 048
  2. RISPERDAL [Suspect]
     Indication: DEPRESSION
     Route: 048
  3. ZOLOFT [Concomitant]
     Indication: DEPRESSION
     Route: 048

REACTIONS (1)
  - HAEMORRHAGIC STROKE [None]
